FAERS Safety Report 9540289 (Version 1)
Quarter: 2013Q3

REPORT INFORMATION
  Report Type: Spontaneous
  Country: MX (occurrence: MX)
  Receive Date: 20130920
  Receipt Date: 20130920
  Transmission Date: 20140515
  Serious: Yes (Hospitalization)
  Sender: FDA-Public Use
  Company Number: PHHY2013MX040329

PATIENT
  Sex: Male

DRUGS (2)
  1. CO-DIOVAN [Suspect]
     Indication: HYPERTENSION
     Dosage: 2 DF, (160/12.5 MG) ONE TABLET IN THE MORNING AND ONE TABLET AT NIGHT
     Route: 048
  2. HYDROCHLOROTHIAZIDE [Concomitant]
     Dosage: 1 DF, DAILY

REACTIONS (2)
  - Cardiac failure [Recovered/Resolved]
  - Syncope [Recovered/Resolved]
